FAERS Safety Report 18637466 (Version 1)
Quarter: 2020Q4

REPORT INFORMATION
  Report Type: Report from Study
  Country: US (occurrence: US)
  Receive Date: 20201218
  Receipt Date: 20201218
  Transmission Date: 20210114
  Serious: Yes (Other)
  Sender: FDA-Public Use
  Company Number: US-REGENERON PHARMACEUTICALS, INC.-2020-73499

PATIENT

DRUGS (3)
  1. EYLEA [Suspect]
     Active Substance: AFLIBERCEPT
     Indication: NEOVASCULAR AGE-RELATED MACULAR DEGENERATION
     Dosage: EVERY 3 TO 4 MONTHS
     Route: 031
  2. EYLEA [Suspect]
     Active Substance: AFLIBERCEPT
     Dosage: EVERY 3 TO 4 MONTHS
     Route: 031
     Dates: start: 202002, end: 202002
  3. EYLEA [Suspect]
     Active Substance: AFLIBERCEPT
     Dosage: EVERY 3 TO 4 MONTHS
     Route: 031
     Dates: start: 20200824, end: 20200824

REACTIONS (3)
  - Foreign body sensation in eyes [Unknown]
  - Eye swelling [Unknown]
  - Injection site discomfort [Unknown]

NARRATIVE: CASE EVENT DATE: 202002
